FAERS Safety Report 6691548-8 (Version None)
Quarter: 2010Q2

REPORT INFORMATION
  Report Type: 
  Country: None (occurrence: None)
  Receive Date: 20100422
  Receipt Date: 20100413
  Transmission Date: 20101027
  Serious: Yes (Other)
  Sender: FDA-Public Use
  Company Number: US-SANOFI-AVENTIS-2010SA022515

PATIENT
  Sex: Female

DRUGS (1)
  1. LOVENOX [Suspect]
     Indication: THROMBOSIS PROPHYLAXIS
     Route: 065
     Dates: start: 20100412

REACTIONS (5)
  - INJECTION SITE EXTRAVASATION [None]
  - INJECTION SITE INDURATION [None]
  - INJECTION SITE REACTION [None]
  - OEDEMA PERIPHERAL [None]
  - PULMONARY OEDEMA [None]
